FAERS Safety Report 7831937-9 (Version None)
Quarter: 2011Q4

REPORT INFORMATION
  Report Type: 
  Country: None (occurrence: None)
  Receive Date: 20111021
  Receipt Date: 20111018
  Transmission Date: 20120403
  Serious: Yes (Death, Hospitalization)
  Sender: FDA-Public Use
  Company Number: IE-ASTRAZENECA-2011SE61980

PATIENT
  Age: 76 Year
  Sex: Male

DRUGS (7)
  1. AUGMENTIN [Suspect]
     Indication: BACTERIAL INFECTION
     Dosage: 875/125 MG
     Route: 065
     Dates: start: 20090527
  2. NEXIUM [Suspect]
     Indication: DUODENAL ULCER
     Route: 048
     Dates: start: 20090403
  3. FUCIDINE CAP [Suspect]
     Indication: BACTERIAL INFECTION
     Route: 065
     Dates: start: 20090522
  4. LEXAPRO [Suspect]
     Indication: DEPRESSION
     Route: 048
     Dates: start: 20090403
  5. SEROQUEL [Suspect]
     Indication: PSYCHOTIC DISORDER
     Route: 048
     Dates: start: 20090403
  6. RIFADIN [Suspect]
     Indication: BACTERIAL INFECTION
     Route: 048
     Dates: start: 20090522, end: 20090527
  7. METRONIDAZOLE [Suspect]
     Indication: BACTERIAL INFECTION
     Route: 065
     Dates: start: 20090522

REACTIONS (2)
  - ACUTE HEPATIC FAILURE [None]
  - HEPATITIS [None]
